FAERS Safety Report 4633537-0 (Version None)
Quarter: 2005Q2

REPORT INFORMATION
  Report Type: 
  Country: None (occurrence: None)
  Receive Date: 20050331
  Receipt Date: 20041221
  Transmission Date: 20051028
  Serious: Yes (Hospitalization)
  Sender: FDA-Public Use
  Company Number: 200416236BCC

PATIENT
  Age: 34 Year
  Sex: Female
  Weight: 50.8029 kg

DRUGS (1)
  1. ALEVE [Suspect]
     Indication: HEADACHE
     Dosage: 220 MG, TID, ORAL
     Route: 048
     Dates: start: 20041001

REACTIONS (8)
  - AURICULAR SWELLING [None]
  - BLISTER [None]
  - LOCAL SWELLING [None]
  - PAIN [None]
  - RASH [None]
  - SKIN BURNING SENSATION [None]
  - STEVENS-JOHNSON SYNDROME [None]
  - THERMAL BURN [None]
